FAERS Safety Report 4910917-7 (Version None)
Quarter: 2006Q1

REPORT INFORMATION
  Report Type: 
  Country: None (occurrence: None)
  Receive Date: 20060214
  Receipt Date: 20060201
  Transmission Date: 20060701
  Serious: Yes (Other)
  Sender: FDA-Public Use
  Company Number: GB-ROCHE-435913

PATIENT
  Sex: Male

DRUGS (4)
  1. XENICAL [Suspect]
     Indication: DRUG USE FOR UNKNOWN INDICATION
     Route: 065
     Dates: start: 20040815
  2. CHLORPROMAZINE [Interacting]
     Route: 065
  3. VENLAFAXINE HCL [Interacting]
     Route: 065
  4. THYROXINE [Interacting]
     Route: 065

REACTIONS (2)
  - DRUG INTERACTION [None]
  - PSYCHOTIC DISORDER [None]
